FAERS Safety Report 19817263 (Version 12)
Quarter: 2022Q2

REPORT INFORMATION
  Report Type: Report from Study
  Country: CO (occurrence: CO)
  Receive Date: 20210910
  Receipt Date: 20220624
  Transmission Date: 20220721
  Serious: Yes (Other)
  Sender: FDA-Public Use
  Company Number: CO-TAKEDA-CO202012660

PATIENT
  Age: 3 Year
  Sex: Male
  Weight: 24 kg

DRUGS (7)
  1. IDURSULFASE [Suspect]
     Active Substance: IDURSULFASE
     Indication: Mucopolysaccharidosis II
     Dosage: 6 MILLIGRAM, 1/WEEK
     Route: 042
  2. IDURSULFASE [Suspect]
     Active Substance: IDURSULFASE
     Dosage: 0.5 MILLIGRAM/KILOGRAM, 1/WEEK
     Route: 042
     Dates: start: 20181031
  3. IDURSULFASE [Suspect]
     Active Substance: IDURSULFASE
     Dosage: 6 MILLIGRAM, 1/WEEK
     Route: 042
     Dates: start: 20181031
  4. IDURSULFASE [Suspect]
     Active Substance: IDURSULFASE
     Dosage: 11 MILLIGRAM, 1/WEEK
     Route: 042
     Dates: start: 20181031
  5. COVID-19 VACCINE NOS [Suspect]
     Active Substance: COVID-19 VACCINE NOS
     Indication: COVID-19 immunisation
     Dosage: UNK
     Route: 065
     Dates: start: 20211104
  6. LORATADINE [Concomitant]
     Active Substance: LORATADINE
     Indication: Prophylaxis
     Dosage: 5 MILLILITER
     Route: 065
  7. ACETAMINOPHEN [Concomitant]
     Active Substance: ACETAMINOPHEN
     Indication: Prophylaxis
     Dosage: 10 MILLILITER
     Route: 065

REACTIONS (53)
  - Cardiac failure [Unknown]
  - COVID-19 [Recovering/Resolving]
  - Haemorrhage [Recovering/Resolving]
  - Application site oedema [Recovered/Resolved]
  - Application site warmth [Recovered/Resolved]
  - Administration site inflammation [Recovering/Resolving]
  - Inflammation [Not Recovered/Not Resolved]
  - Oedema [Recovering/Resolving]
  - Puncture site injury [Unknown]
  - Skin warm [Unknown]
  - Malaise [Unknown]
  - Nodule [Unknown]
  - Drug hypersensitivity [Unknown]
  - Puncture site pain [Recovered/Resolved]
  - Infusion site pain [Recovered/Resolved]
  - Poor venous access [Recovered/Resolved]
  - Weight increased [Unknown]
  - Restlessness [Recovered/Resolved]
  - Crying [Recovering/Resolving]
  - Toothache [Recovering/Resolving]
  - Dental discomfort [Recovering/Resolving]
  - Nervousness [Not Recovered/Not Resolved]
  - Coordination abnormal [Not Recovered/Not Resolved]
  - Gait disturbance [Recovered/Resolved]
  - Illness [Recovering/Resolving]
  - Influenza [Recovering/Resolving]
  - Rhinorrhoea [Recovering/Resolving]
  - Obstruction [Recovering/Resolving]
  - Feeling hot [Recovering/Resolving]
  - Unevaluable event [Unknown]
  - Prescribed underdose [Unknown]
  - Therapy interrupted [Unknown]
  - Psychomotor hyperactivity [Recovered/Resolved]
  - Insomnia [Recovered/Resolved]
  - Cardiac septal hypertrophy [Unknown]
  - COVID-19 immunisation [Unknown]
  - Cough [Recovering/Resolving]
  - Flushing [Unknown]
  - Rash macular [Recovering/Resolving]
  - Oedema peripheral [Recovering/Resolving]
  - Pyrexia [Recovered/Resolved]
  - Nasal congestion [Recovering/Resolving]
  - Wrong dose [Unknown]
  - Peripheral swelling [Recovered/Resolved]
  - Tooth disorder [Unknown]
  - Product administration error [Unknown]
  - Incorrect dose administered [Recovered/Resolved]
  - Inappropriate schedule of product administration [Unknown]
  - Intentional product misuse to child [Unknown]
  - Product prescribing error [Unknown]
  - Fall [Recovering/Resolving]
  - Head injury [Recovering/Resolving]
  - Discomfort [Recovering/Resolving]

NARRATIVE: CASE EVENT DATE: 20200325
